FAERS Safety Report 16026109 (Version 1)
Quarter: 2019Q1

REPORT INFORMATION
  Report Type: Report from Study
  Country: CN (occurrence: CN)
  Receive Date: 20190302
  Receipt Date: 20190302
  Transmission Date: 20190418
  Serious: Yes (Hospitalization)
  Sender: FDA-Public Use
  Company Number: CN-JIANGSU HENGRUI MEDICINE CO., LTD.-2063444

PATIENT
  Age: 62 Year
  Sex: Male
  Weight: 59 kg

DRUGS (5)
  1. ENTECAVIR. [Concomitant]
     Active Substance: ENTECAVIR
     Route: 048
  2. CALCIUM FOLINATE [Suspect]
     Active Substance: LEUCOVORIN CALCIUM
     Dates: start: 20181025
  3. INSULIN ASPART [Concomitant]
     Active Substance: INSULIN ASPART
     Route: 058
  4. IRINOTECAN HYDROCHLORIDE INJECTION, 20 MG/ML (2 ML AND 5 ML VIALS) (AN [Suspect]
     Active Substance: IRINOTECAN HYDROCHLORIDE
     Indication: PANCREATIC CARCINOMA
     Dates: start: 20181025, end: 20181210
  5. FLUOROURACIL. [Suspect]
     Active Substance: FLUOROURACIL
     Dates: start: 20181025, end: 20181210

REACTIONS (1)
  - Small intestinal obstruction [Recovered/Resolved]

NARRATIVE: CASE EVENT DATE: 20181226
